FAERS Safety Report 7852308-5 (Version None)
Quarter: 2011Q4

REPORT INFORMATION
  Report Type: 
  Country: None (occurrence: None)
  Receive Date: 20111026
  Receipt Date: 20111013
  Transmission Date: 20120403
  Serious: Yes (Hospitalization, Other)
  Sender: FDA-Public Use
  Company Number: NL-ELI_LILLY_AND_COMPANY-NL201108008407

PATIENT
  Sex: Female
  Weight: 75 kg

DRUGS (16)
  1. CLOPIDOGREL [Concomitant]
     Indication: ANGINA PECTORIS
     Dosage: 75 MG, UNK
     Route: 048
  2. FORTEO [Suspect]
     Indication: OSTEOPOROSIS
     Dosage: 20 UG, QD
     Route: 058
     Dates: start: 20100616, end: 20110901
  3. LEVOTHYROXINE SODIUM [Concomitant]
     Indication: THYROID DISORDER
     Dosage: 100 UG, UNK
     Route: 048
     Dates: start: 19900101
  4. OMEPRAZOLE [Concomitant]
     Indication: GASTRITIS PROPHYLAXIS
     Dosage: 20 MG, UNK
     Route: 048
  5. AMLODIPINE [Concomitant]
     Indication: ANGINA PECTORIS
     Dosage: 5 MG, UNK
     Route: 048
     Dates: start: 20110801, end: 20110907
  6. CALCIUM CARBONATE W/COLECALCIFEROL [Concomitant]
     Indication: OSTEOPOROSIS
     Dosage: UNK
     Route: 048
  7. CEDOCARD [Concomitant]
  8. FORTEO [Suspect]
     Dosage: 20 UG, QD
     Route: 058
     Dates: start: 20111003
  9. ATORVASTATIN [Concomitant]
     Indication: BLOOD CHOLESTEROL INCREASED
     Dosage: 20 MG, UNK
     Route: 048
  10. LOSARTAN/HYDROCHLOORTHIAZIDE [Concomitant]
     Indication: HYPERTENSION
     Dosage: UNK
     Route: 048
  11. CODEINE PHOSPHATE AND ACETAMINOPHEN [Concomitant]
     Indication: PAIN
     Dosage: UNK
     Route: 048
     Dates: start: 20070101
  12. SINTROM [Concomitant]
     Indication: BLOOD DISORDER
     Dosage: 1 MG, PRN
     Route: 048
     Dates: start: 20110801
  13. SOTALOL HCL [Concomitant]
     Indication: ARRHYTHMIA
     Dosage: UNK MG, UNK
     Route: 048
     Dates: start: 20110801, end: 20110907
  14. BISOPROLOL [Concomitant]
  15. NITROGLYCERIN [Concomitant]
     Indication: ANGINA PECTORIS
     Dosage: 0.4 MG, UNK
     Route: 050
  16. AMIODARONE HCL [Concomitant]

REACTIONS (4)
  - ARRHYTHMIA [None]
  - INJECTION SITE HAEMATOMA [None]
  - ANGINA PECTORIS [None]
  - HEART RATE INCREASED [None]
